FAERS Safety Report 21476866 (Version 1)
Quarter: 2022Q4

REPORT INFORMATION
  Report Type: Spontaneous
  Country: US (occurrence: US)
  Receive Date: 20221019
  Receipt Date: 20221019
  Transmission Date: 20230113
  Serious: No
  Sender: FDA-Public Use
  Company Number: US-CELLTRION INC.-2022US000864

PATIENT

DRUGS (2)
  1. INFLECTRA [Suspect]
     Active Substance: INFLIXIMAB-DYYB
     Indication: Crohn^s disease
     Dosage: 5MG/KG EVERY 6 WEEKS BY INFUSION
     Dates: start: 202011
  2. INFLECTRA [Suspect]
     Active Substance: INFLIXIMAB-DYYB
     Dosage: 5MG/KG EVERY 6 WEEKS BY INFUSION (LAST INFUSION)
     Dates: start: 20211216

REACTIONS (3)
  - Product dispensing issue [Unknown]
  - Treatment delayed [Unknown]
  - Off label use [Unknown]
